FAERS Safety Report 6943456-2 (Version None)
Quarter: 2010Q3

REPORT INFORMATION
  Report Type: 
  Country: None (occurrence: None)
  Receive Date: 20100826
  Receipt Date: 20100817
  Transmission Date: 20110219
  Serious: Yes (Hospitalization, Other)
  Sender: FDA-Public Use
  Company Number: VN-BAXTER-2010BH018639

PATIENT
  Sex: Female

DRUGS (1)
  1. DIANEAL [Suspect]
     Indication: PERITONEAL DIALYSIS
     Route: 033
     Dates: start: 20080120, end: 20100816

REACTIONS (3)
  - CONSTIPATION [None]
  - FUNGAL PERITONITIS [None]
  - PERITONITIS BACTERIAL [None]
